FAERS Safety Report 16481642 (Version 1)
Quarter: 2019Q2

REPORT INFORMATION
  Report Type: Spontaneous
  Country: MX (occurrence: MX)
  Receive Date: 20190627
  Receipt Date: 20190627
  Transmission Date: 20190711
  Serious: Yes (Hospitalization, Other)
  Sender: FDA-Public Use
  Company Number: MX-SUN PHARMACEUTICAL INDUSTRIES LTD-2019RR-211640

PATIENT
  Age: 65 Year
  Sex: Female

DRUGS (6)
  1. METHOTREXATE. [Suspect]
     Active Substance: METHOTREXATE
     Indication: DISEASE PROGRESSION
     Dosage: UNK
     Route: 065
  2. PACLITAXEL. [Suspect]
     Active Substance: PACLITAXEL
     Indication: ENDOMETRIAL ADENOCARCINOMA
     Dosage: UNK, 9 CYCLES
     Route: 065
  3. ADRIAMYCIN [Suspect]
     Active Substance: DOXORUBICIN HYDROCHLORIDE
     Indication: DISEASE PROGRESSION
     Dosage: UNK
     Route: 065
  4. CARBOPLATIN. [Suspect]
     Active Substance: CARBOPLATIN
     Indication: ENDOMETRIAL ADENOCARCINOMA
     Dosage: UNK, 9 CYCLES
     Route: 065
  5. GEMCITABINE [Suspect]
     Active Substance: GEMCITABINE\GEMCITABINE HYDROCHLORIDE
     Indication: DISEASE PROGRESSION
     Dosage: UNK
     Route: 065
  6. TOPOTECAN [Suspect]
     Active Substance: TOPOTECAN HYDROCHLORIDE
     Indication: DISEASE PROGRESSION
     Dosage: 4 MILLIGRAM, TOTAL DOSE
     Route: 065

REACTIONS (6)
  - Posterior reversible encephalopathy syndrome [Recovering/Resolving]
  - Generalised tonic-clonic seizure [Recovering/Resolving]
  - Disease recurrence [Unknown]
  - Disease progression [Unknown]
  - Visual impairment [Recovering/Resolving]
  - Therapy partial responder [Unknown]
